FAERS Safety Report 6503891-3 (Version None)
Quarter: 2009Q4

REPORT INFORMATION
  Report Type: 
  Country: None (occurrence: None)
  Receive Date: 20091217
  Receipt Date: 20091210
  Transmission Date: 20100525
  Serious: Yes (Other)
  Sender: FDA-Public Use
  Company Number: B0616448A

PATIENT
  Sex: Male
  Weight: 100 kg

DRUGS (2)
  1. PAROXETINE HCL [Suspect]
     Indication: DEPRESSION
     Dosage: 20MG PER DAY
     Route: 048
     Dates: start: 19850101, end: 20091101
  2. DIPYRIDAMOLE + ACETYLSALICYLATE [Concomitant]
     Route: 048

REACTIONS (5)
  - AGGRESSION [None]
  - CEREBROVASCULAR ACCIDENT [None]
  - DEPENDENCE [None]
  - DYSKINESIA [None]
  - TRANSIENT ISCHAEMIC ATTACK [None]
